FAERS Safety Report 23516134 (Version 3)
Quarter: 2024Q1

REPORT INFORMATION
  Report Type: Report from Study
  Country: US (occurrence: US)
  Receive Date: 20240213
  Receipt Date: 20240318
  Transmission Date: 20240410
  Serious: Yes (Other)
  Sender: FDA-Public Use
  Company Number: US-GILEAD-2024-0661574

PATIENT
  Sex: Female

DRUGS (2)
  1. AMBRISENTAN [Suspect]
     Active Substance: AMBRISENTAN
     Indication: Product used for unknown indication
     Dosage: 10 MG, QD
     Route: 065
     Dates: start: 20230303
  2. SILDENAFIL CITRATE [Concomitant]
     Active Substance: SILDENAFIL CITRATE

REACTIONS (10)
  - Deafness [Unknown]
  - Chronic obstructive pulmonary disease [Unknown]
  - Illness [Unknown]
  - Ear discomfort [Unknown]
  - Condition aggravated [Not Recovered/Not Resolved]
  - Dyspnoea exertional [Unknown]
  - Fatigue [Unknown]
  - Chest pain [Unknown]
  - Palpitations [Unknown]
  - Vomiting [Unknown]
